FAERS Safety Report 10240859 (Version 1)
Quarter: 2014Q2

REPORT INFORMATION
  Report Type: Other
  Country: JP (occurrence: JP)
  Receive Date: 20140617
  Receipt Date: 20140617
  Transmission Date: 20141212
  Serious: No
  Sender: FDA-Public Use
  Company Number: PHHY2014JP074324

PATIENT
  Age: 68 Year
  Sex: Female

DRUGS (1)
  1. RIVASTIGMINE [Suspect]
     Indication: OFF LABEL USE

REACTIONS (1)
  - No adverse event [Unknown]
